FAERS Safety Report 24887170 (Version 1)
Quarter: 2025Q1

REPORT INFORMATION
  Report Type: Spontaneous
  Country: US (occurrence: US)
  Receive Date: 20250127
  Receipt Date: 20250127
  Transmission Date: 20250409
  Serious: No
  Sender: BRISTOL-MYERS SQUIBB COMPANY
  Company Number: US-BRISTOL-MYERS SQUIBB COMPANY-2025-008471

PATIENT
  Age: 18 Year
  Sex: Male
  Weight: 49.9 kg

DRUGS (2)
  1. COBENFY [Suspect]
     Active Substance: TROSPIUM CHLORIDE\XANOMELINE
     Indication: Schizophrenia
     Dosage: DOSE : 50 MG/20 MG;
     Route: 048
     Dates: start: 20241221
  2. NUPLAZID [Concomitant]
     Active Substance: PIMAVANSERIN TARTRATE
     Indication: Product used for unknown indication

REACTIONS (5)
  - Vomiting [Unknown]
  - Retching [Recovering/Resolving]
  - Product availability issue [Unknown]
  - Initial insomnia [Unknown]
  - Therapeutic response unexpected [Unknown]
